FAERS Safety Report 20901994 (Version 1)
Quarter: 2022Q2

REPORT INFORMATION
  Report Type: Spontaneous
  Country: VN (occurrence: VN)
  Receive Date: 20220601
  Receipt Date: 20220601
  Transmission Date: 20220720
  Serious: Yes (Life-Threatening)
  Sender: FDA-Public Use
  Company Number: VN-FreseniusKabi-FK202207244

PATIENT
  Age: 84 Year
  Sex: Male

DRUGS (6)
  1. SMOFLIPID [Suspect]
     Active Substance: FISH OIL\MEDIUM-CHAIN TRIGLYCERIDES\OLIVE OIL\SOYBEAN OIL
     Indication: Nutritional supplementation
     Route: 042
     Dates: start: 20220525
  2. Natri clorid 0.9% [Concomitant]
     Indication: Product used for unknown indication
  3. Natri clorid 0.9% [Concomitant]
  4. HUMAN ALBUMIN 20% BEHRING [Concomitant]
     Dosage: UNKNOWN
  5. low salt (10g/50ml) [Concomitant]
     Indication: Product used for unknown indication
     Dosage: LOW SALT (10G/50ML)
  6. Amikacin 500mg/100ml [Concomitant]
     Indication: Product used for unknown indication
     Dosage: 500MG/100ML

REACTIONS (4)
  - Pyrexia [Not Recovered/Not Resolved]
  - Heart rate increased [Not Recovered/Not Resolved]
  - Chills [Not Recovered/Not Resolved]
  - Feeling cold [Not Recovered/Not Resolved]

NARRATIVE: CASE EVENT DATE: 20220525
